FAERS Safety Report 8258482 (Version 5)
Quarter: 2012Q4

REPORT INFORMATION
  Report Type: Spontaneous
  Country: US (occurrence: None)
  Receive Date: 20111116
  Receipt Date: 20121025
  Transmission Date: 20130627
  Serious: Yes (Hospitalization, Other)
  Sender: FDA-Public Use
  Company Number: CIP11002975

PATIENT
  Age: 64 Year
  Sex: Female

DRUGS (10)
  1. ACTONEL [Suspect]
     Dosage: 35 MG ONCE WEEKLY, ORAL
     Route: 048
     Dates: start: 20020716, end: 20031024
  2. FOSAMAX [Suspect]
     Indication: OSTEOPENIA
     Dosage: 70 MG, 1/WEEK, ORAL
     Route: 048
     Dates: start: 20040303, end: 200712
  3. ALENDRONATE SODIUM [Suspect]
     Indication: OSTEOPENIA
     Dosage: 70 MG, 1/WEEK, ORAL
     Route: 048
     Dates: start: 20080530, end: 200911
  4. ENALAPRIL MALEATE [Concomitant]
  5. AMITRIPTYLINE HYDROCHLORIDE [Concomitant]
  6. ZYRTEC [Concomitant]
  7. SIMVASTATIN [Concomitant]
  8. CALCIUM CARBONATE [Concomitant]
  9. VITAMIN D  /00318501/ (COLECALCIFEROL) [Concomitant]
  10. MULTIVITAMIN  /00318501/ (ASCORBIC ACID, CALCIUM PANTOTHENATE, ERGOCALCIFEROL, NICOTINAMIDE, PYROXIDINE HYDROCHLORIDE, RETINOL, RIBOFLAVIN, THIAMINE HYDROCHLORIDE) [Concomitant]

REACTIONS (31)
  - Pathological fracture [None]
  - Femur fracture [None]
  - Fracture nonunion [None]
  - Pubis fracture [None]
  - Trendelenburg^s symptom [None]
  - Pain in extremity [None]
  - Bone pain [None]
  - Bone disorder [None]
  - Stress fracture [None]
  - Low turnover osteopathy [None]
  - Osteonecrosis of jaw [None]
  - Fall [None]
  - Musculoskeletal pain [None]
  - Arthralgia [None]
  - Spinal X-ray abnormal [None]
  - Nerve root lesion [None]
  - Back pain [None]
  - Hypoaesthesia [None]
  - Blood urea increased [None]
  - Limb injury [None]
  - Fracture delayed union [None]
  - Fracture malunion [None]
  - Device breakage [None]
  - Device damage [None]
  - Bone graft [None]
  - Toothache [None]
  - Ear pain [None]
  - Sinusitis [None]
  - Anaemia postoperative [None]
  - Sinus tachycardia [None]
  - Metastases to bone [None]
